FAERS Safety Report 23574938 (Version 1)
Quarter: 2024Q1

REPORT INFORMATION
  Report Type: Spontaneous
  Country: US (occurrence: None)
  Receive Date: 20240227
  Receipt Date: 20240227
  Transmission Date: 20240410
  Serious: Yes (Disabling)
  Sender: FDA-Public Use
  Company Number: None

PATIENT
  Age: 64 Year
  Sex: Male
  Weight: 63.9 kg

DRUGS (13)
  1. ARIKAYCE [Suspect]
     Active Substance: AMIKACIN
     Indication: Mycobacterium avium complex infection
     Dates: start: 20231117, end: 20231208
  2. SIROLIMUS [Concomitant]
     Active Substance: SIROLIMUS
  3. bactrium [Concomitant]
  4. AZITHROMYCIN [Concomitant]
     Active Substance: AZITHROMYCIN
  5. ETHAMBUTOL [Concomitant]
     Active Substance: ETHAMBUTOL HYDROCHLORIDE
  6. BEDAQUILINE [Concomitant]
     Active Substance: BEDAQUILINE
  7. SINGULAIR [Concomitant]
     Active Substance: MONTELUKAST SODIUM
  8. NEXIUM [Concomitant]
     Active Substance: ESOMEPRAZOLE MAGNESIUM
  9. LIPITOR [Concomitant]
     Active Substance: ATORVASTATIN CALCIUM
  10. PROLIA [Concomitant]
     Active Substance: DENOSUMAB
  11. VITAMINS [Concomitant]
     Active Substance: VITAMINS
  12. CALCIUM [Concomitant]
     Active Substance: CALCIUM
  13. VITAMIN D [Concomitant]
     Active Substance: VITAMIN D NOS

REACTIONS (8)
  - Dyspnoea [None]
  - Tachypnoea [None]
  - Haemoptysis [None]
  - Oxygen saturation decreased [None]
  - Hypersensitivity [None]
  - Pneumonitis [None]
  - Product label issue [None]
  - Nonspecific reaction [None]

NARRATIVE: CASE EVENT DATE: 20231208
